FAERS Safety Report 8525493-X (Version None)
Quarter: 2012Q3

REPORT INFORMATION
  Report Type: 
  Country: None (occurrence: None)
  Receive Date: 20120720
  Receipt Date: 20120711
  Transmission Date: 20120928
  Serious: Yes (Other)
  Sender: FDA-Public Use
  Company Number: JP-CELGENEUS-087-21660-12071456

PATIENT
  Sex: Female
  Weight: 44 kg

DRUGS (2)
  1. TS-1 [Suspect]
     Indication: GASTRIC CANCER
     Dosage: 100 MILLIGRAM
     Route: 048
     Dates: start: 20120619, end: 20120702
  2. ABRAXANE [Suspect]
     Indication: GASTRIC CANCER
     Dosage: 293 MILLIGRAM
     Route: 041
     Dates: start: 20120619, end: 20120619

REACTIONS (3)
  - DECREASED APPETITE [None]
  - FATIGUE [None]
  - HYPERKALAEMIA [None]
